FAERS Safety Report 18648607 (Version 2)
Quarter: 2021Q1

REPORT INFORMATION
  Report Type: Spontaneous
  Country: FR (occurrence: FR)
  Receive Date: 20201222
  Receipt Date: 20210306
  Transmission Date: 20210419
  Serious: Yes (Hospitalization)
  Sender: FDA-Public Use
  Company Number: FR-ROCHE-2737660

PATIENT
  Sex: Female

DRUGS (1)
  1. MABTHERA [Suspect]
     Active Substance: RITUXIMAB
     Indication: MULTIPLE SCLEROSIS
     Route: 042
     Dates: start: 201806

REACTIONS (6)
  - Off label use [Unknown]
  - Loss of consciousness [Recovered/Resolved]
  - Hot flush [Unknown]
  - Intentional product use issue [Unknown]
  - Fatigue [Unknown]
  - Pyelonephritis [Recovered/Resolved]
